FAERS Safety Report 8802048 (Version 1)
Quarter: 2012Q4

REPORT INFORMATION
  Report Type: 
  Country: BR (occurrence: BR)
  Receive Date: 20120921
  Receipt Date: 20120921
  Transmission Date: 20130627
  Serious: Yes (Other)
  Sender: FDA-Public Use
  Company Number: BR-ABBOTT-12P-020-0981457-00

PATIENT
  Sex: Female

DRUGS (5)
  1. DEPAKOTE ER [Suspect]
     Indication: HEADACHE
     Dates: end: 20120809
  2. DEPAKOTE ER [Suspect]
     Dates: start: 20120810
  3. DEPAKOTE [Suspect]
     Indication: PRODUCT USED FOR UNKNOWN INDICATION
     Dates: start: 20120809, end: 20120809
  4. RIVOTRIL [Concomitant]
     Indication: HEADACHE
     Dosage: At night
     Route: 048
  5. RIVOTRIL [Concomitant]
     Indication: DEPRESSION
     Dosage: At night
     Route: 048
     Dates: start: 20120824

REACTIONS (3)
  - Convulsion [Recovered/Resolved]
  - Insomnia [Recovering/Resolving]
  - Drug dispensing error [Recovered/Resolved]
